FAERS Safety Report 8326515-1 (Version None)
Quarter: 2012Q2

REPORT INFORMATION
  Report Type: 
  Country: None (occurrence: None)
  Receive Date: 20120501
  Receipt Date: 20120425
  Transmission Date: 20120825
  Serious: Yes (Other)
  Sender: FDA-Public Use
  Company Number: AU-ROXANE LABORATORIES, INC.-2012-RO-01120RO

PATIENT
  Age: 55 Year
  Sex: Female

DRUGS (6)
  1. METFORMIN HCL [Suspect]
     Dosage: 3 G
  2. GLICLAZIDE [Suspect]
     Dosage: 80 MG
  3. METHOTREXATE [Suspect]
     Indication: PSORIATIC ARTHROPATHY
  4. NIFEDIPINE [Suspect]
     Dosage: 10 MG
  5. ETANERCEPT [Suspect]
     Indication: PSORIATIC ARTHROPATHY
     Dates: start: 20060301
  6. CANDESARTAN CILEXETIL [Suspect]
     Dosage: 32 MG

REACTIONS (5)
  - NO THERAPEUTIC RESPONSE [None]
  - ARTHRITIS [None]
  - TUBULOINTERSTITIAL NEPHRITIS [None]
  - BLOOD CREATININE INCREASED [None]
  - ANGIOTENSIN CONVERTING ENZYME INCREASED [None]
